FAERS Safety Report 6518897-8 (Version None)
Quarter: 2009Q4

REPORT INFORMATION
  Report Type: 
  Country: None (occurrence: None)
  Receive Date: 20091228
  Receipt Date: 20091218
  Transmission Date: 20100525
  Serious: Yes (Other)
  Sender: FDA-Public Use
  Company Number: US-ASTRAZENECA-2009SE32857

PATIENT
  Age: 62 Year
  Sex: Female

DRUGS (1)
  1. NEXIUM [Suspect]
     Indication: OESOPHAGITIS
     Dosage: TWO TIMES A DAY
     Route: 048
     Dates: start: 20000101

REACTIONS (1)
  - OESOPHAGEAL OPERATION [None]
